FAERS Safety Report 11646767 (Version 2)
Quarter: 2016Q2

REPORT INFORMATION
  Report Type: Spontaneous
  Country: US (occurrence: US)
  Receive Date: 20151020
  Receipt Date: 20160504
  Transmission Date: 20160815
  Serious: No
  Sender: FDA-Public Use
  Company Number: US-ROCHE-ITM201502IM010849

PATIENT
  Age: 73 Year
  Sex: Female
  Weight: 86.26 kg

DRUGS (4)
  1. ESBRIET [Suspect]
     Active Substance: PIRFENIDONE
     Dosage: 3 CAPS 3 TIMES A DAY WITH FOOD
     Route: 048
     Dates: start: 20150317
  2. DOXYCYCLINE. [Concomitant]
     Active Substance: DOXYCYCLINE
     Indication: PROPHYLAXIS
  3. ASPIRIN. [Concomitant]
     Active Substance: ASPIRIN
  4. ESBRIET [Suspect]
     Active Substance: PIRFENIDONE
     Indication: IDIOPATHIC PULMONARY FIBROSIS
     Dosage: 3 CAPSULES THRICE DAILY
     Route: 048
     Dates: start: 20150218

REACTIONS (27)
  - Joint swelling [Unknown]
  - Malaise [Unknown]
  - Dysuria [Unknown]
  - Back pain [Unknown]
  - Constipation [Unknown]
  - Tinea pedis [Unknown]
  - Rash [Unknown]
  - Drug dose omission [Unknown]
  - Nasopharyngitis [Unknown]
  - Asthenia [Not Recovered/Not Resolved]
  - Chest pain [Unknown]
  - Renal pain [Unknown]
  - Dyspnoea [Unknown]
  - Vein disorder [Unknown]
  - Animal bite [Unknown]
  - Diarrhoea [Unknown]
  - Decreased appetite [Unknown]
  - Constipation [Recovered/Resolved]
  - Syncope [Unknown]
  - Abdominal discomfort [Recovering/Resolving]
  - Influenza [Unknown]
  - Abdominal pain upper [Unknown]
  - Fatigue [Not Recovered/Not Resolved]
  - Pain [Unknown]
  - Pyrexia [Unknown]
  - Nausea [Unknown]
  - Cough [Unknown]

NARRATIVE: CASE EVENT DATE: 201504
